FAERS Safety Report 18689671 (Version 1)
Quarter: 2020Q4

REPORT INFORMATION
  Report Type: Report from Study
  Country: SG (occurrence: SG)
  Receive Date: 20201231
  Receipt Date: 20201231
  Transmission Date: 20210114
  Serious: Yes (Death)
  Sender: FDA-Public Use
  Company Number: SG-ASTRAZENECA-2020SF75387

PATIENT
  Age: 31489 Day
  Sex: Male

DRUGS (1)
  1. TAGRISSO [Suspect]
     Active Substance: OSIMERTINIB
     Indication: NON-SMALL CELL LUNG CANCER
     Route: 048
     Dates: start: 20201017, end: 20201128

REACTIONS (1)
  - Death [Fatal]

NARRATIVE: CASE EVENT DATE: 20201206
